FAERS Safety Report 4967340-9 (Version None)
Quarter: 2006Q2

REPORT INFORMATION
  Report Type: 
  Country: None (occurrence: None)
  Receive Date: 20060410
  Receipt Date: 20060403
  Transmission Date: 20061013
  Serious: Yes (Life-Threatening, Hospitalization, Other)
  Sender: FDA-Public Use
  Company Number: PHHO2006TR05484

PATIENT
  Age: 26 Year
  Sex: Male

DRUGS (11)
  1. CYCLOSPORINE [Suspect]
     Indication: RENAL TRANSPLANT
     Dosage: NOT REPORTED
     Route: 048
     Dates: start: 20030915
  2. MYCOPHENOLATE MOFETIL [Suspect]
     Indication: RENAL TRANSPLANT
     Dosage: 1 G, BID
     Route: 048
     Dates: start: 20030915, end: 20031218
  3. METHYLPREDNISOLONE [Concomitant]
     Indication: RENAL TRANSPLANT
     Dosage: 500 MG, QD
     Route: 042
     Dates: start: 20030915
  4. PREDNISOLONE [Suspect]
     Indication: RENAL TRANSPLANT
     Dosage: 20 MG, QD
     Route: 048
     Dates: start: 20030915
  5. FAMOTIDINE [Concomitant]
     Dates: start: 20030915
  6. DILTIAZEM [Concomitant]
     Dates: start: 20030915
  7. ACYCLOVIR [Concomitant]
     Dates: start: 20030916
  8. TRIFLUCAN [Concomitant]
     Dates: start: 20030916
  9. RAMIPRIL [Concomitant]
  10. SULFAMETHOXAZOLE + TRIMETHOPRIM [Concomitant]
     Dates: start: 20030927
  11. OMEPRAZOLE [Concomitant]

REACTIONS (7)
  - BLOOD CREATININE INCREASED [None]
  - HUMAN POLYOMAVIRUS INFECTION [None]
  - POST PROCEDURAL HAEMATOMA [None]
  - POST PROCEDURAL HAEMORRHAGE [None]
  - RENAL PAIN [None]
  - SURGERY [None]
  - URINE ANALYSIS ABNORMAL [None]
